FAERS Safety Report 7256012-6 (Version None)
Quarter: 2011Q1

REPORT INFORMATION
  Report Type: 
  Country: None (occurrence: None)
  Receive Date: 20110129
  Receipt Date: 20100520
  Transmission Date: 20110831
  Serious: No
  Sender: FDA-Public Use
  Company Number: US-ABBOTT-10P-163-0646236-00

PATIENT
  Sex: Male
  Weight: 74.91 kg

DRUGS (6)
  1. TEMOVATE [Concomitant]
     Indication: PSORIASIS
     Route: 061
  2. HUMIRA [Suspect]
     Route: 058
     Dates: start: 20091101, end: 20100501
  3. HUMIRA [Suspect]
     Indication: PSORIASIS
     Route: 058
     Dates: start: 20080601, end: 20090601
  4. DOVONEX [Concomitant]
     Indication: PSORIASIS
     Route: 061
  5. LIPOCREAM [Concomitant]
     Indication: PSORIASIS
     Route: 061
  6. DIPROLENE [Concomitant]
     Indication: PSORIASIS
     Route: 061

REACTIONS (5)
  - INJECTION SITE REACTION [None]
  - SCROTAL PAIN [None]
  - INJECTION SITE PAIN [None]
  - RADIATION ASSOCIATED PAIN [None]
  - ARTHRALGIA [None]
